FAERS Safety Report 22656025 (Version 1)
Quarter: 2023Q2

REPORT INFORMATION
  Report Type: Spontaneous
  Country: US (occurrence: US)
  Receive Date: 20230629
  Receipt Date: 20230629
  Transmission Date: 20230721
  Serious: Yes (Other)
  Sender: FDA-Public Use
  Company Number: US-NKFPHARMA-2023MPSPO00018

PATIENT
  Age: 71 Year
  Sex: Male

DRUGS (2)
  1. HEPARIN SODIUM [Suspect]
     Active Substance: HEPARIN SODIUM
     Indication: Product used for unknown indication
     Dosage: DOSING AS 14000 UNITS BOLUS AND INFUSION STARTED FROM 1400 UNITS PER HOUR
     Route: 065
  2. HEPARIN SODIUM [Suspect]
     Active Substance: HEPARIN SODIUM

REACTIONS (3)
  - Haemorrhage [Unknown]
  - Drug ineffective [Unknown]
  - Product substitution issue [Unknown]
